FAERS Safety Report 4979310-5 (Version None)
Quarter: 2006Q2

REPORT INFORMATION
  Report Type: 
  Country: None (occurrence: None)
  Receive Date: 20060418
  Receipt Date: 20060404
  Transmission Date: 20061013
  Serious: Yes (Life-Threatening, Hospitalization)
  Sender: FDA-Public Use
  Company Number: FR200604000608

PATIENT
  Age: 45 Year
  Sex: Male
  Weight: 93 kg

DRUGS (6)
  1. ZYPREXA [Suspect]
     Indication: SCHIZOAFFECTIVE DISORDER
     Dosage: 30 MG, DAILY (1/D), ORAL
     Route: 048
  2. NOZINAN (LEVOMEPROMAZINE) [Concomitant]
  3. CLONAZEPAM [Concomitant]
  4. LEPTICUR (TROPATEPINE HYDROCHLORIDE) [Concomitant]
  5. DEPAKOTE (VALPROATE SEMISODIUM) TABLET [Concomitant]
  6. TERALITHE (LITHIUM CARBONATE) SLOW RELEASE TABLET [Concomitant]

REACTIONS (8)
  - ACUTE RESPIRATORY DISTRESS SYNDROME [None]
  - DYSPNOEA EXERTIONAL [None]
  - HYPOXIA [None]
  - LUNG INFECTION PSEUDOMONAL [None]
  - OBSTRUCTION [None]
  - PLEURAL EFFUSION [None]
  - PRODUCTIVE COUGH [None]
  - SPUTUM CULTURE POSITIVE [None]
